FAERS Safety Report 5011259-4 (Version None)
Quarter: 2006Q2

REPORT INFORMATION
  Report Type: 
  Country: None (occurrence: None)
  Receive Date: 20060523
  Receipt Date: 20060523
  Transmission Date: 20061013
  Serious: Yes (Death, Hospitalization)
  Sender: FDA-Public Use
  Company Number: None

PATIENT
  Age: 76 Year
  Sex: Female
  Weight: 94 kg

DRUGS (4)
  1. TOPOTECAN,   2.5 MG/M2, GLAXOSMITHKLINE [Suspect]
     Indication: OVARIAN CANCER
     Dosage: 4.95 MG, Q 1WK,  IV
     Route: 042
     Dates: start: 20060303
  2. TOPOTECAN,   2.5 MG/M2, GLAXOSMITHKLINE [Suspect]
     Indication: RECURRENT CANCER
     Dosage: 4.95 MG, Q 1WK,  IV
     Route: 042
     Dates: start: 20060303
  3. LOVENOX [Concomitant]
  4. TYLENOL (CAPLET) [Concomitant]

REACTIONS (5)
  - ASCITES [None]
  - DYSPNOEA [None]
  - FLUID RETENTION [None]
  - PLATELET COUNT DECREASED [None]
  - STENT PLACEMENT [None]
